FAERS Safety Report 15683185 (Version 1)
Quarter: 2018Q4

REPORT INFORMATION
  Report Type: Spontaneous
  Country: US (occurrence: US)
  Receive Date: 20181204
  Receipt Date: 20181204
  Transmission Date: 20190205
  Serious: No
  Sender: FDA-Public Use
  Company Number: US-TEVA-2018-US-983732

PATIENT
  Age: 21 Year
  Sex: Female
  Weight: 59 kg

DRUGS (4)
  1. AXERT [Concomitant]
     Active Substance: ALMOTRIPTAN MALATE
     Indication: MIGRAINE
  2. MAXALT [Concomitant]
     Active Substance: RIZATRIPTAN BENZOATE
     Indication: MIGRAINE
  3. BENADRYL [Concomitant]
     Active Substance: DIPHENHYDRAMINE HYDROCHLORIDE
  4. AJOVY [Suspect]
     Active Substance: FREMANEZUMAB-VFRM
     Route: 058
     Dates: start: 20181102

REACTIONS (1)
  - Injection site rash [Not Recovered/Not Resolved]

NARRATIVE: CASE EVENT DATE: 20181128
